FAERS Safety Report 6940582-9 (Version None)
Quarter: 2010Q3

REPORT INFORMATION
  Report Type: 
  Country: None (occurrence: None)
  Receive Date: 20100825
  Receipt Date: 20100816
  Transmission Date: 20110219
  Serious: Yes (Hospitalization)
  Sender: FDA-Public Use
  Company Number: US-B.I. PHARMACEUTICALS,INC./RIDGEFIELD-2010-BP-09561PF

PATIENT
  Age: 76 Year
  Sex: Female
  Weight: 60.33 kg

DRUGS (8)
  1. SPIRIVA [Suspect]
     Route: 055
  2. ARIMIDEX [Suspect]
     Indication: BREAST CANCER
     Dosage: 1 MG
     Dates: start: 20051213
  3. FORTEO [Suspect]
  4. NORVASC [Suspect]
  5. DIGOXIN [Suspect]
  6. CHANTIX [Suspect]
  7. COREG [Suspect]
  8. IMDUR [Suspect]

REACTIONS (5)
  - DYSPNOEA [None]
  - INFARCTION [None]
  - LEFT VENTRICULAR DYSFUNCTION [None]
  - MYOCARDIAL ISCHAEMIA [None]
  - WEIGHT INCREASED [None]
